FAERS Safety Report 11506002 (Version 1)
Quarter: 2015Q3

REPORT INFORMATION
  Report Type: Spontaneous
  Country: US (occurrence: US)
  Receive Date: 20150915
  Receipt Date: 20150915
  Transmission Date: 20151125
  Serious: No
  Sender: FDA-Public Use
  Company Number: US-ROCHE-756096

PATIENT
  Age: 58 Year
  Sex: Male
  Weight: 78.9 kg

DRUGS (3)
  1. RIBASPHERE [Suspect]
     Active Substance: RIBAVIRIN
     Indication: HEPATITIS C
     Dosage: DIVIDED DOSES
     Route: 048
  2. RIBASPHERE [Suspect]
     Active Substance: RIBAVIRIN
     Dosage: DOSE DECREASED
     Route: 048
  3. PEGASYS [Suspect]
     Active Substance: PEGINTERFERON ALFA-2A
     Indication: HEPATITIS C
     Dosage: PRE-FILLED SYRINGE
     Route: 058

REACTIONS (20)
  - Procedural complication [Unknown]
  - Rash erythematous [Not Recovered/Not Resolved]
  - Anaemia [Unknown]
  - Temperature intolerance [Unknown]
  - Otitis externa [Recovered/Resolved]
  - White blood cell count decreased [Unknown]
  - Paraesthesia [Unknown]
  - Fatigue [Not Recovered/Not Resolved]
  - Rash pruritic [Recovering/Resolving]
  - Gravitational oedema [Not Recovered/Not Resolved]
  - Influenza like illness [Unknown]
  - Anaemia [Recovering/Resolving]
  - Disturbance in attention [Unknown]
  - Mucosal ulceration [Recovered/Resolved]
  - Psoriasis [Not Recovered/Not Resolved]
  - Hepatic enzyme abnormal [Unknown]
  - Visual impairment [Unknown]
  - Pain [Recovering/Resolving]
  - Xerosis [Not Recovered/Not Resolved]
  - Nausea [Unknown]

NARRATIVE: CASE EVENT DATE: 20101119
